FAERS Safety Report 11074090 (Version 1)
Quarter: 2015Q2

REPORT INFORMATION
  Report Type: Spontaneous
  Country: US (occurrence: None)
  Receive Date: 20150427
  Receipt Date: 20150427
  Transmission Date: 20150821
  Serious: Yes (Disabling, Other)
  Sender: FDA-Public Use
  Company Number: 2015-11126

PATIENT
  Age: 81 Year
  Sex: Female

DRUGS (3)
  1. OCUVITE /01053801/ (ASCORBIC ACID, RETINOL, TOCOPHEROL) [Concomitant]
  2. EYLEA [Suspect]
     Active Substance: AFLIBERCEPT
     Indication: MACULAR DEGENERATION
     Route: 031
  3. LUTEIN /01638501/ (XANTOFYL) [Concomitant]

REACTIONS (2)
  - Blindness unilateral [None]
  - Blindness transient [None]
